FAERS Safety Report 6237933-X (Version None)
Quarter: 2009Q2

REPORT INFORMATION
  Report Type: 
  Country: None (occurrence: None)
  Receive Date: 20090622
  Receipt Date: 20070815
  Transmission Date: 20091009
  Serious: Yes (Other)
  Sender: FDA-Public Use
  Company Number: US-ASTRAZENECA-2007UW02057

PATIENT
  Age: 37 Year
  Sex: Male

DRUGS (10)
  1. SEROQUEL [Suspect]
     Indication: SCHIZOPHRENIA
     Dosage: 100-400 MG
     Route: 048
     Dates: start: 20010501
  2. SEROQUEL [Suspect]
     Indication: THINKING ABNORMAL
     Dosage: 100-400 MG
     Route: 048
     Dates: start: 20010501
  3. SEROQUEL [Suspect]
     Route: 048
     Dates: start: 20010101, end: 20060101
  4. SEROQUEL [Suspect]
     Route: 048
     Dates: start: 20010101, end: 20060101
  5. ABILIFY [Concomitant]
     Dates: start: 20060101
  6. HALDOL [Concomitant]
     Dosage: STRENGTH 150 MG
     Dates: start: 20010501
  7. HALDOL [Concomitant]
     Dates: start: 20060101
  8. RISPERDAL [Concomitant]
     Dates: start: 19990101
  9. RISPERDAL [Concomitant]
     Dates: start: 19991219
  10. COGENTIN [Concomitant]
     Indication: THINKING ABNORMAL
     Dosage: 1-6 MG
     Dates: start: 20010501

REACTIONS (5)
  - BLOOD CHOLESTEROL INCREASED [None]
  - DIABETIC RETINOPATHY [None]
  - HYPERCHOLESTEROLAEMIA [None]
  - OBESITY [None]
  - TYPE 2 DIABETES MELLITUS [None]
